FAERS Safety Report 8785864 (Version 1)
Quarter: 2012Q4

REPORT INFORMATION
  Report Type: Spontaneous
  Country: FR (occurrence: None)
  Receive Date: 20120905
  Receipt Date: 20120905
  Transmission Date: 20130627
  Serious: Yes (Death)
  Sender: FDA-Public Use
  Company Number: DSA_59110_2012

PATIENT

DRUGS (6)
  1. FLUOROURACIL (FLUOROURACIL) [Suspect]
     Indication: ADENOCARCINOMA
     Route: 040
  2. FLUOROURACIL (FLUOROURACIL) [Suspect]
     Indication: ADENOCARCINOMA
     Dosage: 2400 mg/m2 over 46 hours
  3. CALCIUM FOLINATE [Suspect]
     Indication: ADENOCARCINOMA
     Route: 042
  4. IRINOTECAN [Suspect]
     Indication: ADENOCARCINOMA
     Dosage: 180 mg/m2 over 90 minutes
     Route: 042
  5. GRANISETRON [Concomitant]
  6. METHYLPREDNISOLONE [Concomitant]

REACTIONS (2)
  - Metastases to liver [None]
  - Adenocarcinoma [None]
